FAERS Safety Report 9619698 (Version 4)
Quarter: 2013Q4

REPORT INFORMATION
  Report Type: Report from Study
  Country: UY (occurrence: UY)
  Receive Date: 20131014
  Receipt Date: 20131208
  Transmission Date: 20140711
  Serious: Yes (Hospitalization)
  Sender: FDA-Public Use
  Company Number: UY-ROCHE-1288323

PATIENT
  Sex: Female
  Weight: 77 kg

DRUGS (3)
  1. XELODA [Suspect]
     Indication: COLON CANCER
     Dosage: 1500 MG AM AND 1500 MG PM
     Route: 048
     Dates: start: 20120705
  2. OXALIPLATIN [Suspect]
     Indication: COLON CANCER
     Route: 065
  3. IRINOTECAN [Suspect]
     Indication: COLON CANCER
     Route: 065

REACTIONS (6)
  - Hepatitis toxic [Recovered/Resolved]
  - Hypokalaemia [Recovered/Resolved]
  - Palmar-plantar erythrodysaesthesia syndrome [Recovering/Resolving]
  - Diarrhoea [Recovering/Resolving]
  - Neutropenia [Recovering/Resolving]
  - Alopecia [Unknown]
